FAERS Safety Report 8974878 (Version 1)
Quarter: 2012Q4

REPORT INFORMATION
  Report Type: Spontaneous
  Country: US (occurrence: None)
  Receive Date: 20121218
  Receipt Date: 20121218
  Transmission Date: 20130627
  Serious: No
  Sender: FDA-Public Use
  Company Number: None

PATIENT
  Age: 67 Year
  Sex: Male
  Weight: 105.46 kg

DRUGS (2)
  1. FEXOFENADINE [Suspect]
     Indication: ALLERGIC RHINITIS
     Route: 048
     Dates: start: 20010731, end: 20030428
  2. FEXOFENADINE [Suspect]
     Indication: ALLERGIC RHINITIS
     Dates: start: 20110519, end: 20121108

REACTIONS (2)
  - Product substitution issue [None]
  - Drug effect decreased [None]
